FAERS Safety Report 4571389-8 (Version None)
Quarter: 2005Q1

REPORT INFORMATION
  Report Type: 
  Country: None (occurrence: None)
  Receive Date: 20050205
  Receipt Date: 20050128
  Transmission Date: 20050727
  Serious: Yes (Other)
  Sender: FDA-Public Use
  Company Number: US-ABBOTT-05P-163-0288882-00

PATIENT
  Age: 15 Year
  Sex: Female
  Weight: 69.008 kg

DRUGS (3)
  1. BIAXIN XL [Suspect]
     Indication: LYME DISEASE
     Dates: start: 20040101, end: 20050101
  2. BIAXIN XL [Suspect]
     Dates: start: 20050101
  3. LEXAPRO [Suspect]
     Indication: ANXIETY
     Route: 048
     Dates: start: 20040101

REACTIONS (7)
  - AGGRESSION [None]
  - CONVULSION [None]
  - DEPRESSION [None]
  - DRUG INTERACTION [None]
  - FEELING HOT [None]
  - HYPERHIDROSIS [None]
  - SUICIDAL IDEATION [None]
